FAERS Safety Report 9256741 (Version 1)
Quarter: 2013Q2

REPORT INFORMATION
  Report Type: Spontaneous
  Country: FR (occurrence: FR)
  Receive Date: 20130426
  Receipt Date: 20130426
  Transmission Date: 20140414
  Serious: Yes (Hospitalization)
  Sender: FDA-Public Use
  Company Number: FR-AMGEN-FRASP2013028376

PATIENT
  Age: 45 Year
  Sex: Male

DRUGS (6)
  1. NEUPOGEN [Suspect]
     Indication: PRODUCT USED FOR UNKNOWN INDICATION
     Dosage: 0.1429 DF, (1 DF, 1 IN 1 WEEK)
     Route: 058
     Dates: start: 201102
  2. INCIVO [Suspect]
     Dosage: 375 MG, UNK
     Dates: start: 201102, end: 201104
  3. COPEGUS [Suspect]
     Dosage: 200 MG, (4 DF: 2 DF, 2 IN 1 DAY)
     Route: 048
     Dates: start: 201109
  4. PEGASYS [Suspect]
     Dosage: 0.1429 DF (1 DF IN 1 WEEK)
     Route: 058
     Dates: start: 201109
  5. REVOLADE [Suspect]
     Dosage: 50 MG, UNK
     Route: 058
     Dates: start: 201109
  6. NEORECORMON [Suspect]
     Dosage: UNK
     Dates: start: 201109

REACTIONS (1)
  - Pancytopenia [Unknown]
